FAERS Safety Report 5058335-8 (Version None)
Quarter: 2006Q2

REPORT INFORMATION
  Report Type: 
  Country: None (occurrence: None)
  Receive Date: 20060627
  Receipt Date: 20051020
  Transmission Date: 20061013
  Serious: Yes (Hospitalization)
  Sender: FDA-Public Use
  Company Number: 421879

PATIENT
  Age: 70 Year
  Sex: Male

DRUGS (5)
  1. XELODA [Suspect]
     Indication: COLORECTAL CANCER METASTATIC
  2. OXALIPLATIN [Suspect]
     Indication: COLORECTAL CANCER METASTATIC
  3. AVASTIN [Suspect]
     Indication: COLORECTAL CANCER METASTATIC
     Dosage: 7.5 MG/KG 1 PER 3 WEEK INTRAVENOUS
     Route: 042
     Dates: start: 20050913
  4. DOLASETRON (DOLASETRON MESYLATE) [Concomitant]
  5. BENADRYL (*ACRIVASTINE/*AMMONIUM CHLORIDE/*CAMPHOR/*DIPHENHYDRAMINE HY [Concomitant]

REACTIONS (1)
  - GASTRIC ULCER PERFORATION [None]
